FAERS Safety Report 4881838-3 (Version None)
Quarter: 2006Q1

REPORT INFORMATION
  Report Type: 
  Country: None (occurrence: None)
  Receive Date: 20060112
  Receipt Date: 20051230
  Transmission Date: 20060701
  Serious: Yes (Hospitalization)
  Sender: FDA-Public Use
  Company Number: 2005172389

PATIENT
  Age: 81 Year
  Sex: Female
  Weight: 63.5 kg

DRUGS (4)
  1. AROMASIN [Suspect]
     Indication: BREAST CANCER
     Dosage: (25 MG), ORAL
     Route: 048
     Dates: start: 20051001
  2. HYDROCHLOROTHIAZIDE [Concomitant]
  3. PRANDIN (REPALINIDE) [Concomitant]
  4. MEVACOR [Concomitant]

REACTIONS (8)
  - CARDIAC FAILURE [None]
  - DYSPHONIA [None]
  - HYPERTENSION [None]
  - MALAISE [None]
  - PERFORMANCE STATUS DECREASED [None]
  - PULMONARY OEDEMA [None]
  - RENAL FAILURE [None]
  - WEIGHT DECREASED [None]
